FAERS Safety Report 21769807 (Version 1)
Quarter: 2022Q4

REPORT INFORMATION
  Report Type: Other
  Country: US (occurrence: None)
  Receive Date: 20221223
  Receipt Date: 20221223
  Transmission Date: 20230113
  Serious: No
  Sender: FDA-Public Use
  Company Number: US-ROCHE-3248991

PATIENT
  Age: 74 Year
  Sex: Female
  Weight: 72.640 kg

DRUGS (1)
  1. OCREVUS [Suspect]
     Active Substance: OCRELIZUMAB
     Indication: Relapsing-remitting multiple sclerosis
     Dosage: THE PATIENT STATES SHE THINKS SHE BEGAN IT -JUN-2022 ;ONGOING: YES
     Route: 042
     Dates: start: 202206

REACTIONS (2)
  - COVID-19 [Recovered/Resolved]
  - Body height decreased [Unknown]

NARRATIVE: CASE EVENT DATE: 20221201
